FAERS Safety Report 11660326 (Version 5)
Quarter: 2016Q2

REPORT INFORMATION
  Report Type: Report from Study
  Country: US (occurrence: US)
  Receive Date: 20151026
  Receipt Date: 20160420
  Transmission Date: 20160815
  Serious: Yes (Hospitalization, Other)
  Sender: FDA-Public Use
  Company Number: US-ACTELION-A-NJ2015-125758

PATIENT
  Age: 72 Year
  Sex: Female

DRUGS (18)
  1. MACITENTAN [Suspect]
     Active Substance: MACITENTAN
     Dosage: 10 UNK, UNK
     Route: 048
     Dates: start: 20141201
  2. ZANTAC [Concomitant]
     Active Substance: RANITIDINE HYDROCHLORIDE
     Dosage: 150 MG, UNK
     Route: 048
     Dates: start: 20150824
  3. FUROSEMIDE. [Concomitant]
     Active Substance: FUROSEMIDE
     Dosage: 40 MG, UNK
     Dates: start: 20141023
  4. RESTORIL [Concomitant]
     Active Substance: TEMAZEPAM
     Dosage: 30 MG, QPM
     Route: 048
     Dates: start: 20131017
  5. PERCOCET [Concomitant]
     Active Substance: ACETAMINOPHEN\OXYCODONE HYDROCHLORIDE
     Dosage: UNK, Q4HRS
     Route: 048
     Dates: start: 20151002
  6. ASPIRIN. [Concomitant]
     Active Substance: ASPIRIN
     Dosage: 81 MG, UNK
     Route: 048
     Dates: start: 20120427
  7. PRILOSEC [Concomitant]
     Active Substance: OMEPRAZOLE MAGNESIUM
     Dosage: 20.6 MG, UNK
     Route: 048
     Dates: start: 20140728
  8. MACITENTAN [Suspect]
     Active Substance: MACITENTAN
     Indication: PULMONARY ARTERIAL HYPERTENSION
     Dosage: 10 MG, QD
     Route: 048
     Dates: start: 20141115
  9. METOPROLOL. [Concomitant]
     Active Substance: METOPROLOL
     Dosage: 12.5 MG, BID
     Route: 048
     Dates: start: 20150624
  10. PENTASA [Concomitant]
     Active Substance: MESALAMINE
     Dosage: 1000 MG, BID
     Route: 048
     Dates: start: 20150824
  11. PROAIR HFA [Concomitant]
     Active Substance: ALBUTEROL SULFATE
     Dosage: 2 PUFF, QD
     Route: 055
     Dates: start: 20141002
  12. QVAR [Concomitant]
     Active Substance: BECLOMETHASONE DIPROPIONATE
     Dosage: 2 PUFF, BID
     Route: 055
     Dates: start: 20141002
  13. PREDNISONE. [Concomitant]
     Active Substance: PREDNISONE
     Dosage: 10 MG, UNK
     Route: 048
     Dates: start: 20150925, end: 20151001
  14. SYMBICORT [Concomitant]
     Active Substance: BUDESONIDE\FORMOTEROL FUMARATE DIHYDRATE
     Indication: CHRONIC OBSTRUCTIVE PULMONARY DISEASE
     Dosage: 2 PUFFS
     Route: 055
     Dates: start: 20141002
  15. CITRACAL [Concomitant]
     Active Substance: CALCIUM CITRATE
     Dosage: UNK
     Route: 048
     Dates: start: 20141002
  16. SIMVASTATIN. [Concomitant]
     Active Substance: SIMVASTATIN
     Dosage: 40 MG, UNK
     Route: 048
     Dates: start: 20111017
  17. SINGULAIR [Concomitant]
     Active Substance: MONTELUKAST SODIUM
     Dosage: 10 MG, UNK
     Route: 048
     Dates: start: 20141002
  18. TEMAZEPAM. [Concomitant]
     Active Substance: TEMAZEPAM
     Indication: INSOMNIA
     Dosage: 30 MG, QD
     Route: 048
     Dates: start: 20131017

REACTIONS (21)
  - Blood bilirubin increased [Recovered/Resolved]
  - Anaemia [Unknown]
  - Gait disturbance [Unknown]
  - Pancreatitis [Recovered/Resolved]
  - Aspartate aminotransferase increased [Recovered/Resolved]
  - Cholecystectomy [Recovered/Resolved]
  - Chest pain [Unknown]
  - Haemoglobin [Recovered/Resolved]
  - Ejection fraction decreased [Unknown]
  - Abdominal pain [Recovered/Resolved]
  - Vomiting [Recovered/Resolved]
  - Haematocrit decreased [Recovered/Resolved]
  - Post procedural complication [Unknown]
  - Lipase increased [Recovered/Resolved]
  - Alanine aminotransferase increased [Recovered/Resolved]
  - Asthma [Unknown]
  - Epistaxis [Unknown]
  - Transfusion [Recovered/Resolved]
  - Amylase increased [Recovered/Resolved]
  - Cholelithiasis [Recovered/Resolved]
  - Nausea [Recovered/Resolved]

NARRATIVE: CASE EVENT DATE: 20141210
